FAERS Safety Report 8060635-4 (Version None)
Quarter: 2012Q1

REPORT INFORMATION
  Report Type: 
  Country: None (occurrence: None)
  Receive Date: 20120120
  Receipt Date: 20120117
  Transmission Date: 20120608
  Serious: Yes (Other)
  Sender: FDA-Public Use
  Company Number: FR-PFIZER INC-K201100772

PATIENT
  Age: 46 Year
  Sex: Male

DRUGS (3)
  1. ALTACE [Suspect]
     Dosage: 2.5 MG, 1X/DAY
     Route: 048
     Dates: start: 20110503, end: 20110512
  2. ALTACE [Suspect]
     Dosage: 5 MG, 1X/DAY
     Route: 048
     Dates: start: 20110428, end: 20110502
  3. ALTACE [Suspect]
     Indication: HYPERTENSION
     Dosage: 5 MG, 2X/DAY
     Route: 048
     Dates: start: 20110427, end: 20110427

REACTIONS (3)
  - ANXIETY [None]
  - DEPRESSION [None]
  - PANIC ATTACK [None]
